FAERS Safety Report 4458284-X (Version None)
Quarter: 2004Q3

REPORT INFORMATION
  Report Type: 
  Country: None (occurrence: None)
  Receive Date: 20040924
  Receipt Date: 20040915
  Transmission Date: 20050211
  Serious: Yes (Death, Other)
  Sender: FDA-Public Use
  Company Number: JP-BRISTOL-MYERS SQUIBB COMPANY-12705018

PATIENT
  Age: 69 Year
  Sex: Male

DRUGS (1)
  1. HYDREA [Suspect]
     Indication: POLYCYTHAEMIA VERA
     Route: 048
     Dates: start: 19900101

REACTIONS (3)
  - ACUTE LEUKAEMIA [None]
  - PLATELET COUNT ABNORMAL [None]
  - TREATMENT RELATED SECONDARY MALIGNANCY [None]
